FAERS Safety Report 9011789 (Version 3)
Quarter: 2015Q1

REPORT INFORMATION
  Report Type: Spontaneous
  Country: US (occurrence: None)
  Receive Date: 20121228
  Receipt Date: 20150323
  Transmission Date: 20150721
  Serious: Yes (Hospitalization)
  Sender: FDA-Public Use
  Company Number: 1539834

PATIENT
  Age: 26 Year
  Sex: Female
  Weight: 53 kg

DRUGS (11)
  1. OXYGEN. [Suspect]
     Active Substance: OXYGEN
     Indication: OXYGEN SUPPLEMENTATION
     Route: 055
  2. BUPIVACAINE HYDROCHLORIDE. [Suspect]
     Active Substance: BUPIVACAINE HYDROCHLORIDE
     Indication: SPINAL ANAESTHESIA
     Route: 037
  3. FENTANYL CITRATE. [Suspect]
     Active Substance: FENTANYL CITRATE
     Indication: SPINAL ANAESTHESIA
     Route: 037
  4. SODIUM CITRATE. [Suspect]
     Active Substance: SODIUM CITRATE
     Indication: PRODUCT USED FOR UNKNOWN INDICATION
     Route: 048
  5. SODIUM CHLORIDE. [Suspect]
     Active Substance: SODIUM CHLORIDE
     Indication: ANAESTHESIA PROCEDURE
     Route: 008
  6. LACTATED RINGERS [Suspect]
     Active Substance: CALCIUM CHLORIDE\POTASSIUM CHLORIDE\SODIUM CHLORIDE\SODIUM LACTATE
     Indication: PRODUCT USED FOR UNKNOWN INDICATION
  7. SUCCINYLCHOLINE CHLORIDE. [Suspect]
     Active Substance: SUCCINYLCHOLINE CHLORIDE
     Indication: INDUCTION OF ANAESTHESIA
     Route: 042
  8. TERBUTALINE [Suspect]
     Active Substance: TERBUTALINE
     Indication: UTERINE HYPOTONUS
     Route: 042
  9. LIDOCAINE HYDROCHLORIDE. [Suspect]
     Active Substance: LIDOCAINE HYDROCHLORIDE
     Indication: EPIDURAL ANALGESIA
     Route: 008
  10. CEFAZOLIN [Suspect]
     Active Substance: CEFAZOLIN
     Indication: INFECTION PROPHYLAXIS
     Route: 042
  11. PROPOFOL. [Suspect]
     Active Substance: PROPOFOL
     Indication: INDUCTION OF ANAESTHESIA
     Route: 042

REACTIONS (10)
  - Hypovolaemia [None]
  - Procedural haemorrhage [None]
  - Uterine atony [None]
  - Hypotension [None]
  - Haematocrit decreased [None]
  - Premature separation of placenta [None]
  - Maternal exposure during delivery [None]
  - Caesarean section [None]
  - Uterine hypertonus [None]
  - Drug interaction [None]
